FAERS Safety Report 11117938 (Version 1)
Quarter: 2015Q2

REPORT INFORMATION
  Report Type: Spontaneous
  Country: US (occurrence: US)
  Receive Date: 20150518
  Receipt Date: 20150518
  Transmission Date: 20150821
  Serious: No
  Sender: FDA-Public Use
  Company Number: US-ASTRAZENECA-2014SE90619

PATIENT
  Age: 17338 Day
  Sex: Female
  Weight: 117.9 kg

DRUGS (5)
  1. SODIUM [Concomitant]
     Active Substance: SODIUM
  2. REQUIP [Suspect]
     Active Substance: ROPINIROLE HYDROCHLORIDE
     Indication: RESTLESS LEGS SYNDROME
     Route: 065
  3. LISINOPRIL. [Concomitant]
     Active Substance: LISINOPRIL
     Indication: BLOOD PRESSURE ABNORMAL
  4. BYDUREON [Suspect]
     Active Substance: EXENATIDE
     Indication: TYPE 2 DIABETES MELLITUS
     Route: 058
     Dates: start: 2014
  5. HYDROCHORITOT [Concomitant]
     Indication: FLUID RETENTION

REACTIONS (2)
  - Food poisoning [Recovering/Resolving]
  - Underdose [Unknown]

NARRATIVE: CASE EVENT DATE: 20141111
